FAERS Safety Report 7330259-2 (Version None)
Quarter: 2011Q1

REPORT INFORMATION
  Report Type: 
  Country: None (occurrence: None)
  Receive Date: 20110303
  Receipt Date: 20110218
  Transmission Date: 20110831
  Serious: Yes (Hospitalization, Disabling)
  Sender: FDA-Public Use
  Company Number: US-MYLANLABS-2011S1003621

PATIENT
  Age: 63 Year
  Sex: Male

DRUGS (3)
  1. PREDNISONE [Suspect]
     Indication: IMMUNOSUPPRESSION
     Route: 065
  2. TACROLIMUS [Suspect]
     Indication: IMMUNOSUPPRESSION
     Route: 065
  3. MYCOPHENOLATE MOFETIL [Concomitant]
     Indication: IMMUNOSUPPRESSION
     Route: 065

REACTIONS (3)
  - OPTIC NEUROPATHY [None]
  - DEAFNESS BILATERAL [None]
  - ASTHENIA [None]
